FAERS Safety Report 7382898-0 (Version None)
Quarter: 2011Q1

REPORT INFORMATION
  Report Type: 
  Country: None (occurrence: None)
  Receive Date: 20110330
  Receipt Date: 20101012
  Transmission Date: 20110831
  Serious: Yes (Hospitalization)
  Sender: FDA-Public Use
  Company Number: US-BAYER-201027580NA

PATIENT
  Sex: Female
  Weight: 50.9 kg

DRUGS (19)
  1. DIAZEPAM [Concomitant]
     Indication: PAIN
     Dosage: 5 MG, UNK
     Dates: start: 20080611, end: 20080627
  2. MEPERIDINE [Concomitant]
     Dosage: 50 MG, UNK
  3. IBUPROFEN [Concomitant]
     Indication: PAIN
     Dosage: UNK UNK, UNK
     Route: 065
     Dates: start: 20080601, end: 20090201
  4. YAZ [Suspect]
     Indication: MENORRHAGIA
  5. YAZ [Suspect]
     Indication: DYSMENORRHOEA
  6. DIAZEPAM [Concomitant]
     Indication: ANXIETY
  7. ASCORBIC ACID [Concomitant]
     Dosage: 500 MG, UNK
     Route: 065
     Dates: start: 20080601, end: 20080607
  8. VICODIN [Concomitant]
  9. PROMETHAZINE [Concomitant]
     Dosage: 25 MG, UNK
  10. ROCEPHIN [Concomitant]
     Route: 042
  11. POTASSIUM 99 [Concomitant]
     Route: 048
  12. IBUPROFEN [Concomitant]
     Indication: HEADACHE
     Route: 065
     Dates: start: 20080401
  13. IBUPROFEN [Concomitant]
     Indication: MUSCLE SPASMS
  14. HYDROCODONE [HYDROCODONE] [Concomitant]
     Indication: PAIN
     Dosage: UNK UNK, UNK
     Route: 065
     Dates: start: 20080627
  15. YAZ [Suspect]
     Indication: ACNE
     Dosage: UNK UNK, UNK
     Route: 048
     Dates: start: 20080419
  16. YAZ [Suspect]
     Indication: PREMENSTRUAL SYNDROME
  17. DOCUSATE [Concomitant]
     Dosage: 100 MG, UNK
     Dates: start: 20080611
  18. CEPHALEXIN [Concomitant]
     Indication: INFECTION PROPHYLAXIS
     Dosage: 500 MG, UNK
     Dates: start: 20080611
  19. CIPROFLOXACIN [Concomitant]

REACTIONS (5)
  - PULMONARY EMBOLISM [None]
  - BACK PAIN [None]
  - NAUSEA [None]
  - ABDOMINAL PAIN UPPER [None]
  - DEEP VEIN THROMBOSIS [None]
